FAERS Safety Report 7418027-4 (Version None)
Quarter: 2011Q2

REPORT INFORMATION
  Report Type: 
  Country: None (occurrence: None)
  Receive Date: 20110415
  Receipt Date: 20110328
  Transmission Date: 20111010
  Serious: Yes (Hospitalization)
  Sender: FDA-Public Use
  Company Number: US-KINGPHARMUSA00001-K201100411

PATIENT
  Sex: Female

DRUGS (8)
  1. ALTACE [Suspect]
     Indication: HYPERTENSION
     Dosage: 10 MG, QD
     Route: 048
     Dates: start: 20100801
  2. PHENOBARBITAL SRT [Concomitant]
  3. MANIDIPINE [Suspect]
     Indication: HYPERTENSION
     Dosage: 10 MG, UNK
     Route: 048
     Dates: start: 20100801, end: 20101201
  4. MEDICINES FOR HYPERSHOLESTEROLEMIA [Concomitant]
  5. MEDICINES FOR OSTEOARTHRITIS [Concomitant]
  6. PHENYTOIN [Concomitant]
  7. BENICAR [Suspect]
     Indication: HYPERTENSION
     Dosage: 40 MG, QD
     Route: 048
     Dates: start: 20100801, end: 20101201
  8. AMLODIPINE [Suspect]
     Indication: HYPERTENSION
     Dosage: 5 MG, UNK
     Route: 048
     Dates: start: 20100801, end: 20101201

REACTIONS (5)
  - DRUG INEFFECTIVE [None]
  - OEDEMA PERIPHERAL [None]
  - PERIPHERAL NERVE OPERATION [None]
  - ERYTHEMA [None]
  - PAIN IN EXTREMITY [None]
